FAERS Safety Report 18537886 (Version 2)
Quarter: 2020Q4

REPORT INFORMATION
  Report Type: Report from Study
  Country: CO (occurrence: CO)
  Receive Date: 20201124
  Receipt Date: 20201230
  Transmission Date: 20210114
  Serious: No
  Sender: FDA-Public Use
  Company Number: CO-JNJFOC-20201115130

PATIENT
  Age: 32 Year
  Sex: Female
  Weight: 64 kg

DRUGS (5)
  1. PREDNISOLONE. [Concomitant]
     Active Substance: PREDNISOLONE
  2. LEFLUNOMIDE. [Concomitant]
     Active Substance: LEFLUNOMIDE
  3. PARACETAMOL [Concomitant]
     Active Substance: ACETAMINOPHEN
  4. SIMPONI [Suspect]
     Active Substance: GOLIMUMAB
     Indication: RHEUMATOID ARTHRITIS
     Dosage: THE MOST RECENT DRUG ADMINISTRATION WAS ON 03NOV2020
     Route: 058
     Dates: start: 20200302
  5. AMOXICILLIN. [Concomitant]
     Active Substance: AMOXICILLIN

REACTIONS (6)
  - Device issue [Unknown]
  - Pain [Recovering/Resolving]
  - Product container seal issue [Unknown]
  - Pyrexia [Recovering/Resolving]
  - Nasopharyngitis [Recovering/Resolving]
  - Headache [Recovering/Resolving]

NARRATIVE: CASE EVENT DATE: 202010
